FAERS Safety Report 8164370-3 (Version None)
Quarter: 2012Q1

REPORT INFORMATION
  Report Type: 
  Country: None (occurrence: None)
  Receive Date: 20120224
  Receipt Date: 20120216
  Transmission Date: 20120608
  Serious: Yes (Hospitalization, Other)
  Sender: FDA-Public Use
  Company Number: PHHY2012GB013503

PATIENT

DRUGS (2)
  1. ATENOLOL [Suspect]
     Indication: MYOCARDIAL ISCHAEMIA
     Dates: start: 20050101, end: 20070101
  2. PROPRANOLOL [Suspect]
     Dosage: 40 MG, BID

REACTIONS (6)
  - VOMITING [None]
  - ASCITES [None]
  - ABDOMINAL PAIN [None]
  - SCLEROSING ENCAPSULATING PERITONITIS [None]
  - RENAL IMPAIRMENT [None]
  - ABDOMINAL DISTENSION [None]
